FAERS Safety Report 24005444 (Version 1)
Quarter: 2024Q2

REPORT INFORMATION
  Report Type: Spontaneous
  Country: US (occurrence: None)
  Receive Date: 20240622
  Receipt Date: 20240622
  Transmission Date: 20240716
  Serious: Yes (Death)
  Sender: FDA-Public Use
  Company Number: None

PATIENT
  Sex: Female
  Weight: 30.1 kg

DRUGS (5)
  1. CALASPARGASE PEGOL [Suspect]
     Active Substance: CALASPARGASE PEGOL
  2. CYTARABINE [Concomitant]
     Active Substance: CYTARABINE
  3. DEXAMETHASONE [Concomitant]
     Active Substance: DEXAMETHASONE
  4. METHOTREXATE [Concomitant]
  5. VinCRIStine sulfate) [Concomitant]

REACTIONS (24)
  - Sepsis [None]
  - Pseudomonas test positive [None]
  - Klebsiella test positive [None]
  - Cardiac arrest [None]
  - Myopathy [None]
  - Constipation [None]
  - Hypotension [None]
  - Tachycardia [None]
  - Anaemia [None]
  - Neutropenia [None]
  - Hyponatraemia [None]
  - Hyperglycaemia [None]
  - Pulmonary haemorrhage [None]
  - Disseminated intravascular coagulation [None]
  - Epistaxis [None]
  - Unresponsive to stimuli [None]
  - Choking [None]
  - Metabolic acidosis [None]
  - Hypoxia [None]
  - Pharyngeal haemorrhage [None]
  - Pulse absent [None]
  - Vomiting [None]
  - Acute kidney injury [None]
  - Hypophagia [None]

NARRATIVE: CASE EVENT DATE: 20240614
